FAERS Safety Report 5167739-4 (Version None)
Quarter: 2006Q4

REPORT INFORMATION
  Report Type: 
  Country: None (occurrence: None)
  Receive Date: 20061130
  Receipt Date: 20061130
  Transmission Date: 20070319
  Serious: Yes (Hospitalization)
  Sender: FDA-Public Use
  Company Number: None

PATIENT
  Sex: Female
  Weight: 77.3837 kg

DRUGS (7)
  1. DOCETAXEL [Suspect]
     Dates: start: 20051219, end: 20060126
  2. CARBOPLATIN [Suspect]
     Dates: start: 20051219, end: 20060126
  3. B12 [Concomitant]
  4. GLUCOSAMINE [Concomitant]
  5. CHONDROITIN [Concomitant]
  6. CARAFATE [Concomitant]
  7. XANAX [Concomitant]

REACTIONS (1)
  - INTESTINAL OBSTRUCTION [None]
